FAERS Safety Report 20206895 (Version 3)
Quarter: 2023Q2

REPORT INFORMATION
  Report Type: Report from Study
  Country: US (occurrence: None)
  Receive Date: 20211220
  Receipt Date: 20230411
  Transmission Date: 20230721
  Serious: Yes (Hospitalization, Other)
  Sender: FDA-Public Use
  Company Number: US-ROCHE-2964270

PATIENT
  Age: 77 Year
  Sex: Male
  Weight: 105.6 kg

DRUGS (3)
  1. VENETOCLAX [Suspect]
     Active Substance: VENETOCLAX
     Indication: Chronic lymphocytic leukaemia
     Dosage: DATE OF MOST RECENT DOSE : 07/OCT/2021?20 MG PO QD DAYS 1-7 CYCLE 3, 50 MG PO QD DAYS 8-14, CYCLE 3,
     Route: 048
     Dates: start: 20210806
  2. OBINUTUZUMAB [Suspect]
     Active Substance: OBINUTUZUMAB
     Indication: Chronic lymphocytic leukaemia
     Dosage: 100 MG IV ON C1D1, 900 MG IV ON C1D2, 1000 MG IV ON C1D8 + C1D15, C2-6D1, MOST RECENT DOSE: 19-FEB-2
     Route: 042
     Dates: start: 20201001
  3. IBRUTINIB [Suspect]
     Active Substance: IBRUTINIB
     Indication: Chronic lymphocytic leukaemia
     Dosage: DATE OF MOST RECENT DOSE OF IBRUTINIB : 07/OCT/2021?HELD 18 DAYS DUE TO COVID-19 AND 15 DAYS DUE TO
     Route: 048
     Dates: start: 20210806

REACTIONS (9)
  - Sepsis [Not Recovered/Not Resolved]
  - Back pain [Not Recovered/Not Resolved]
  - Cholecystitis [Not Recovered/Not Resolved]
  - Hypotension [Not Recovered/Not Resolved]
  - Perineal abscess [Not Recovered/Not Resolved]
  - Lymphocyte count decreased [Not Recovered/Not Resolved]
  - Necrotising fasciitis [Not Recovered/Not Resolved]
  - Urinary tract infection [Not Recovered/Not Resolved]
  - Pulmonary embolism [Unknown]

NARRATIVE: CASE EVENT DATE: 20210914
